FAERS Safety Report 18346458 (Version 1)
Quarter: 2020Q4

REPORT INFORMATION
  Report Type: Spontaneous
  Country: US (occurrence: US)
  Receive Date: 20201005
  Receipt Date: 20201005
  Transmission Date: 20210114
  Serious: No
  Sender: FDA-Public Use
  Company Number: US-ELI_LILLY_AND_COMPANY-US201907014296

PATIENT

DRUGS (1)
  1. EMGALITY [Suspect]
     Active Substance: GALCANEZUMAB-GNLM
     Indication: PRODUCT USED FOR UNKNOWN INDICATION
     Dosage: 1 DOSAGE FORM, UNKNOWN
     Route: 065

REACTIONS (9)
  - Pruritus [Unknown]
  - Fatigue [Unknown]
  - Hyperhidrosis [Unknown]
  - Drug ineffective [Unknown]
  - Feeling hot [Unknown]
  - Constipation [Unknown]
  - Migraine [Unknown]
  - Headache [Unknown]
  - Fibromyalgia [Unknown]
